FAERS Safety Report 17921035 (Version 1)
Quarter: 2020Q2

REPORT INFORMATION
  Report Type: Spontaneous
  Country: SG (occurrence: SG)
  Receive Date: 20200622
  Receipt Date: 20200622
  Transmission Date: 20200714
  Serious: Yes (Hospitalization)
  Sender: FDA-Public Use
  Company Number: SG-ROCHE-2624280

PATIENT
  Age: 69 Year
  Sex: Male
  Weight: 60.5 kg

DRUGS (10)
  1. BACTRIM [Concomitant]
     Active Substance: SULFAMETHOXAZOLE\TRIMETHOPRIM
     Route: 065
     Dates: start: 20200219
  2. DEXAMETHASONE. [Suspect]
     Active Substance: DEXAMETHASONE
     Indication: B-CELL LYMPHOMA RECURRENT
     Route: 042
     Dates: start: 20200304
  3. MICONAZOLE. [Concomitant]
     Active Substance: MICONAZOLE
     Route: 065
     Dates: start: 20200214
  4. RITUXIMAB. [Suspect]
     Active Substance: RITUXIMAB
     Indication: B-CELL LYMPHOMA
     Route: 042
     Dates: start: 20200304
  5. LAMIVUDINE. [Concomitant]
     Active Substance: LAMIVUDINE
     Route: 065
     Dates: start: 20200219
  6. CISPLATIN. [Suspect]
     Active Substance: CISPLATIN
     Indication: B-CELL LYMPHOMA RECURRENT
     Route: 042
     Dates: start: 20200304
  7. AUGMENTIN [Concomitant]
     Active Substance: AMOXICILLIN\CLAVULANATE POTASSIUM
     Route: 065
     Dates: start: 20200219, end: 20200225
  8. CYTARABINE. [Suspect]
     Active Substance: CYTARABINE
     Indication: B-CELL LYMPHOMA RECURRENT
     Route: 042
     Dates: start: 20200305
  9. PREDNISOLONE. [Concomitant]
     Active Substance: PREDNISOLONE
     Route: 065
     Dates: start: 20200219, end: 20200224
  10. ACICLOVIR [Concomitant]
     Active Substance: ACYCLOVIR
     Route: 065
     Dates: start: 20200219

REACTIONS (2)
  - Hyponatraemia [Recovered/Resolved]
  - Hypokalaemia [Recovered/Resolved]

NARRATIVE: CASE EVENT DATE: 20200309
